FAERS Safety Report 4452142-2 (Version None)
Quarter: 2004Q3

REPORT INFORMATION
  Report Type: 
  Country: None (occurrence: None)
  Receive Date: 20040917
  Receipt Date: 20040906
  Transmission Date: 20050211
  Serious: Yes (Other)
  Sender: FDA-Public Use
  Company Number: GBWYE003526AUG04

PATIENT
  Sex: Female
  Weight: 65 kg

DRUGS (7)
  1. ENBREL [Suspect]
     Indication: DRUG USE FOR UNKNOWN INDICATION
     Route: 058
     Dates: start: 20040629, end: 20040716
  2. METHYLPREDNISOLONE ACETATE [Concomitant]
     Dosage: 120MG ONCE ONLY
     Route: 030
     Dates: start: 20040601, end: 20040601
  3. CHLORPHENIRAMINE MALEATE [Concomitant]
     Dosage: 4MG
     Route: 048
     Dates: start: 20040705
  4. ANTIBIOTICS [Concomitant]
  5. PENICILLIN V [Concomitant]
     Dosage: UNKNOWN
     Dates: end: 20040816
  6. PREDNISOLONE [Concomitant]
     Route: 048
  7. NORETHINDRONE ACETATE [Concomitant]

REACTIONS (5)
  - ALANINE AMINOTRANSFERASE INCREASED [None]
  - CHEST DISCOMFORT [None]
  - MENORRHAGIA [None]
  - POLYMENORRHOEA [None]
  - UTERINE INFECTION [None]
